FAERS Safety Report 6422235-9 (Version None)
Quarter: 2009Q4

REPORT INFORMATION
  Report Type: 
  Country: None (occurrence: None)
  Receive Date: 20091029
  Receipt Date: 20091029
  Transmission Date: 20100525
  Serious: Yes (Hospitalization, Other)
  Sender: FDA-Public Use
  Company Number: None

PATIENT
  Age: 51 Year
  Sex: Male
  Weight: 70.5 kg

DRUGS (2)
  1. CIPRO [Suspect]
     Indication: INFECTION
     Dosage: 500 MG 2X DAILY
     Dates: start: 20091014
  2. FLEXERIL [Suspect]
     Indication: INFECTION
     Dosage: 10 MG. 2X DAILY
     Dates: start: 20091015

REACTIONS (11)
  - ABDOMINAL PAIN [None]
  - ASTHENIA [None]
  - BACK PAIN [None]
  - DISORIENTATION [None]
  - DRUG INEFFECTIVE [None]
  - DYSGRAPHIA [None]
  - FEELING ABNORMAL [None]
  - MOTOR DYSFUNCTION [None]
  - TREMOR [None]
  - VISUAL IMPAIRMENT [None]
  - VOMITING [None]
